FAERS Safety Report 7349759-4 (Version None)
Quarter: 2011Q1

REPORT INFORMATION
  Report Type: 
  Country: None (occurrence: None)
  Receive Date: 20110309
  Receipt Date: 20110309
  Transmission Date: 20110831
  Serious: Yes (Hospitalization)
  Sender: FDA-Public Use
  Company Number: None

PATIENT
  Age: 80 Year
  Sex: Male
  Weight: 102.3 kg

DRUGS (4)
  1. CIPRO [Suspect]
  2. WARFARIN SODIUM [Suspect]
     Indication: DEEP VEIN THROMBOSIS
     Dosage: MG PO
     Route: 048
     Dates: start: 20090520
  3. WARFARIN SODIUM [Suspect]
     Indication: PULMONARY EMBOLISM
     Dosage: MG PO
     Route: 048
     Dates: start: 20090520
  4. AUGMENTIN '125' [Suspect]

REACTIONS (4)
  - INTERNATIONAL NORMALISED RATIO ABNORMAL [None]
  - HAEMORRHAGE [None]
  - HAEMATURIA [None]
  - URINARY TRACT INFECTION [None]
